FAERS Safety Report 7760545-3 (Version None)
Quarter: 2011Q3

REPORT INFORMATION
  Report Type: 
  Country: None (occurrence: None)
  Receive Date: 20110919
  Receipt Date: 20110908
  Transmission Date: 20111222
  Serious: Yes (Other)
  Sender: FDA-Public Use
  Company Number: US-ELI_LILLY_AND_COMPANY-US201011003112

PATIENT
  Sex: Female

DRUGS (4)
  1. LANTUS [Concomitant]
     Dosage: UNK, EACH EVENING
  2. HUMALOG [Suspect]
     Indication: TYPE 2 DIABETES MELLITUS
     Dosage: 22 U, 3/D
     Dates: start: 20091101
  3. HUMALOG [Suspect]
     Dosage: 22 U, 3/D
     Dates: start: 20091101
  4. HUMALOG [Suspect]
     Dosage: 22 U, 3/D
     Dates: start: 20091101

REACTIONS (8)
  - EYE HAEMORRHAGE [None]
  - VISUAL ACUITY REDUCED [None]
  - SCAR [None]
  - RETINAL INJURY [None]
  - RETINAL HAEMORRHAGE [None]
  - EYE SWELLING [None]
  - VISUAL IMPAIRMENT [None]
  - DRUG DOSE OMISSION [None]
